FAERS Safety Report 6624006-7 (Version None)
Quarter: 2010Q1

REPORT INFORMATION
  Report Type: 
  Country: None (occurrence: None)
  Receive Date: 20100305
  Receipt Date: 20100216
  Transmission Date: 20100710
  Serious: Yes (Other)
  Sender: FDA-Public Use
  Company Number: FKO201000035

PATIENT
  Age: 50 Year
  Sex: Male

DRUGS (5)
  1. CYCLOPHOSPHAMIDE [Suspect]
     Indication: NON-HODGKIN'S LYMPHOMA
  2. DOXORUBICIN (MANUFACTURER UNKNOWN) DOXORUBICIN HYDROCHLORIDE) (DOXORUB [Suspect]
     Indication: NON-HODGKIN'S LYMPHOMA
  3. RITUXIMAB (RITUXIMAB) (RITUXIMAB) [Concomitant]
  4. VINCRISTINE [Concomitant]
  5. PREDNISOLONE [Concomitant]

REACTIONS (2)
  - DISEASE RECURRENCE [None]
  - HEPATITIS B DNA INCREASED [None]
